FAERS Safety Report 4649800-3 (Version None)
Quarter: 2005Q2

REPORT INFORMATION
  Report Type: 
  Country: None (occurrence: None)
  Receive Date: 20050502
  Receipt Date: 20050425
  Transmission Date: 20051028
  Serious: Yes (Death, Other)
  Sender: FDA-Public Use
  Company Number: PHBS2005YU05987

PATIENT
  Sex: Male
  Weight: 62 kg

DRUGS (3)
  1. ALTEC [Concomitant]
  2. NOVASEN [Concomitant]
  3. ZOMETA [Suspect]
     Indication: METASTASES TO BONE
     Dosage: 4 MG, QMO
     Route: 042
     Dates: start: 20050111

REACTIONS (3)
  - DEATH [None]
  - PYREXIA [None]
  - THROMBOCYTOPENIA [None]
